FAERS Safety Report 15675041 (Version 2)
Quarter: 2019Q2

REPORT INFORMATION
  Report Type: Spontaneous
  Country: US (occurrence: US)
  Receive Date: 20181130
  Receipt Date: 20190506
  Transmission Date: 20190711
  Serious: No
  Sender: FDA-Public Use
  Company Number: US-PFIZER INC-2018480019

PATIENT
  Age: 53 Year
  Sex: Female
  Weight: 99.79 kg

DRUGS (6)
  1. ADVIL PM [Suspect]
     Active Substance: DIPHENHYDRAMINE CITRATE\IBUPROFEN
     Indication: PAIN
     Dosage: 1 DF, UNK (TAKING 1)
  2. METOPROLOL. [Concomitant]
     Active Substance: METOPROLOL
     Indication: BLOOD PRESSURE ABNORMAL
     Dosage: UNK, 1X/DAY (100-25MG TABLET)
     Route: 048
  3. ADVIL PM [Suspect]
     Active Substance: DIPHENHYDRAMINE CITRATE\IBUPROFEN
     Dosage: 1 DF, 1X/DAY, (TAKING 1 ADVIL PM AT NIGHT)
  4. ADVIL PM [Suspect]
     Active Substance: DIPHENHYDRAMINE CITRATE\IBUPROFEN
     Dosage: UNK, 1X/DAY, (TAKING EITHER A HALF OR A WHOLE PILL PER NIGHT)
  5. QUINAPRIL. [Concomitant]
     Active Substance: QUINAPRIL
     Indication: BLOOD PRESSURE ABNORMAL
     Dosage: 40 MG, 1X/DAY
     Route: 048
  6. CELLCEPT [Concomitant]
     Active Substance: MYCOPHENOLATE MOFETIL\MYCOPHENOLATE MOFETIL HYDROCHLORIDE
     Indication: PROPHYLAXIS AGAINST TRANSPLANT REJECTION
     Dosage: 1000 MG, 2X/DAY (2 TABLETS AN HOUR BEFORE BREAKFAST, AND 2 TABLETS AND HOUR BEFORE DINNER)
     Route: 048
     Dates: start: 2013

REACTIONS (3)
  - Fatigue [Unknown]
  - Intentional product misuse [Unknown]
  - Somnolence [Unknown]
